FAERS Safety Report 11433248 (Version 1)
Quarter: 2015Q3

REPORT INFORMATION
  Report Type: Spontaneous
  Country: US (occurrence: None)
  Receive Date: 20150828
  Receipt Date: 20150828
  Transmission Date: 20151125
  Serious: No
  Sender: FDA-Public Use
  Company Number: None

PATIENT
  Age: 61 Year
  Sex: Female

DRUGS (3)
  1. EPIRUBICIN [Suspect]
     Active Substance: EPIRUBICIN
  2. CYCLOPHOSPHAMIDE. [Suspect]
     Active Substance: CYCLOPHOSPHAMIDE
     Dates: start: 20150813
  3. 5-FLUROURACIL [Suspect]
     Active Substance: FLUOROURACIL
     Indication: EMBOLISM
     Dates: start: 20150813

REACTIONS (2)
  - Deep vein thrombosis [None]
  - Cellulitis [None]

NARRATIVE: CASE EVENT DATE: 20150824
